FAERS Safety Report 6216431-3 (Version None)
Quarter: 2009Q2

REPORT INFORMATION
  Report Type: 
  Country: None (occurrence: None)
  Receive Date: 20090603
  Receipt Date: 20090603
  Transmission Date: 20091009
  Serious: Yes (Life-Threatening)
  Sender: FDA-Public Use
  Company Number: None

PATIENT
  Age: 77 Year
  Sex: Male
  Weight: 109.1 kg

DRUGS (1)
  1. LISINOPRIL [Suspect]
     Indication: HYPERTENSION
     Dosage: 40 MG DAILY FROM APPROX. MAY, 2007 /5/12/09
     Dates: start: 20070501, end: 20090512

REACTIONS (5)
  - DYSPNOEA [None]
  - EYE SWELLING [None]
  - LOCAL SWELLING [None]
  - SWELLING FACE [None]
  - SWOLLEN TONGUE [None]
